FAERS Safety Report 7055186-X (Version None)
Quarter: 2010Q4

REPORT INFORMATION
  Report Type: 
  Country: None (occurrence: None)
  Receive Date: 20101020
  Receipt Date: 20101020
  Transmission Date: 20110411
  Serious: Yes (Other)
  Sender: FDA-Public Use
  Company Number: None

PATIENT
  Age: 62 Year
  Sex: Female
  Weight: 60.782 kg

DRUGS (1)
  1. ZOLEDRONIC ACID [Suspect]
     Indication: BONE DISORDER
     Dosage: 5 MILLIGRAM ONCE A YEAR INTGRAVENOUS ARM
     Route: 042
     Dates: start: 20100805

REACTIONS (8)
  - ALOPECIA [None]
  - CHILLS [None]
  - DYSKINESIA [None]
  - ERYTHEMA [None]
  - GAIT DISTURBANCE [None]
  - PAIN IN EXTREMITY [None]
  - PRURITUS [None]
  - SKIN DISCOLOURATION [None]
